FAERS Safety Report 6935817-2 (Version None)
Quarter: 2010Q3

REPORT INFORMATION
  Report Type: 
  Country: None (occurrence: None)
  Receive Date: 20100823
  Receipt Date: 20100809
  Transmission Date: 20110219
  Serious: Yes (Other)
  Sender: FDA-Public Use
  Company Number: PHHY2010CA48033

PATIENT
  Sex: Male

DRUGS (6)
  1. CLOZARIL [Suspect]
     Indication: DYSKINESIA
     Dosage: 25 MG, QHS
     Route: 048
     Dates: start: 20100621, end: 20100721
  2. CLOZARIL [Suspect]
     Indication: DOPAMINE DYSREGULATION SYNDROME
  3. L-DOPA [Concomitant]
     Dosage: 100/25 MG 2 TABLETS AD 5 TIMES A DAY
  4. REQUIP [Concomitant]
     Dosage: 5 MG 1 TABLETS 4 TIMES A DAY
  5. DOMPERIDONE [Concomitant]
     Dosage: 10 MG 2 TABLETS 4 TIMES A DAY
  6. AMANTADINE [Concomitant]
     Dosage: 100 MG 1 TABLET 3 TIMES A DAY

REACTIONS (5)
  - CONFUSIONAL STATE [None]
  - DEPRESSED LEVEL OF CONSCIOUSNESS [None]
  - DISORIENTATION [None]
  - OEDEMA [None]
  - OEDEMA PERIPHERAL [None]
